FAERS Safety Report 14868125 (Version 1)
Quarter: 2018Q2

REPORT INFORMATION
  Report Type: Spontaneous
  Country: US (occurrence: US)
  Receive Date: 20180509
  Receipt Date: 20180509
  Transmission Date: 20180711
  Serious: Yes (Hospitalization, Other)
  Sender: FDA-Public Use
  Company Number: US-B.I. PHARMACEUTICALS,INC./RIDGEFIELD-2018-BI-024853

PATIENT
  Age: 45 Year
  Sex: Male

DRUGS (1)
  1. PRADAXA [Suspect]
     Active Substance: DABIGATRAN ETEXILATE MESYLATE
     Indication: FACTOR V LEIDEN MUTATION
     Dosage: STRENGTH: 150 MG; ADMINISTRATION CORRECT? NR, ACTION(S) TAKEN WITH PRODUCT: DRUG WITHDRAWN
     Route: 048
     Dates: start: 2015, end: 201804

REACTIONS (4)
  - Pulmonary thrombosis [Not Recovered/Not Resolved]
  - Off label use [Recovered/Resolved]
  - Cardiac disorder [Not Recovered/Not Resolved]
  - Intracardiac thrombus [Not Recovered/Not Resolved]

NARRATIVE: CASE EVENT DATE: 2015
